FAERS Safety Report 16288038 (Version 1)
Quarter: 2019Q2

REPORT INFORMATION
  Report Type: Spontaneous
  Country: CA (occurrence: CA)
  Receive Date: 20190508
  Receipt Date: 20190508
  Transmission Date: 20190711
  Serious: Yes (Other)
  Sender: FDA-Public Use
  Company Number: CA-PURDUE-CAN-2019-0010044

PATIENT
  Age: 17 Year
  Sex: Female

DRUGS (1)
  1. FOQUEST [Suspect]
     Active Substance: METHYLPHENIDATE HYDROCHLORIDE
     Indication: ATTENTION DEFICIT/HYPERACTIVITY DISORDER
     Dosage: 45 MG, UNK
     Route: 065

REACTIONS (2)
  - Headache [Unknown]
  - Eye contusion [Unknown]
